FAERS Safety Report 18757672 (Version 1)
Quarter: 2021Q1

REPORT INFORMATION
  Report Type: Spontaneous
  Country: IT (occurrence: IT)
  Receive Date: 20210119
  Receipt Date: 20210119
  Transmission Date: 20210419
  Serious: Yes (Other)
  Sender: FDA-Public Use
  Company Number: IT-TAKEDA-2020TUS027741

PATIENT
  Age: 29 Year
  Sex: Female

DRUGS (2)
  1. BORTEZOMIB. [Suspect]
     Active Substance: BORTEZOMIB
     Indication: ENCEPHALITIS AUTOIMMUNE
     Dosage: 1.3 MILLIGRAM/SQ. METER
     Route: 042
  2. TRAMADOL. [Suspect]
     Active Substance: TRAMADOL
     Indication: ENCEPHALITIS AUTOIMMUNE
     Dosage: 100 MILLIGRAM, QID
     Route: 065

REACTIONS (2)
  - Off label use [Unknown]
  - Infection [Unknown]
